FAERS Safety Report 21413436 (Version 2)
Quarter: 2022Q4

REPORT INFORMATION
  Report Type: Spontaneous
  Country: UY (occurrence: None)
  Receive Date: 20221006
  Receipt Date: 20221013
  Transmission Date: 20230113
  Serious: Yes (Death, Hospitalization)
  Sender: FDA-Public Use
  Company Number: UY-ROCHE-3193090

PATIENT
  Age: 75 Year
  Sex: Male

DRUGS (4)
  1. TECENTRIQ [Suspect]
     Active Substance: ATEZOLIZUMAB
     Indication: Lung neoplasm malignant
     Dosage: FREQUENCY WAS NOT REPORTED?A SINGLE DOSE WAS TAKEN
     Route: 042
     Dates: start: 20220908, end: 20220908
  2. METOCLOPRAMIDE [Concomitant]
     Active Substance: METOCLOPRAMIDE
  3. PREDNISONE [Concomitant]
     Active Substance: PREDNISONE
     Dosage: 70MG/DAY
     Route: 048
  4. OMEPRAZOLE [Concomitant]
     Active Substance: OMEPRAZOLE

REACTIONS (9)
  - General physical health deterioration [Unknown]
  - Decreased appetite [Unknown]
  - Fatigue [Unknown]
  - Nausea [Fatal]
  - Asthenia [Unknown]
  - Jaundice [Unknown]
  - Prothrombin time shortened [Unknown]
  - Immune-mediated hepatitis [Fatal]
  - Hepatic encephalopathy [Fatal]

NARRATIVE: CASE EVENT DATE: 20220925
